FAERS Safety Report 23104631 (Version 1)
Quarter: 2023Q4

REPORT INFORMATION
  Report Type: Other
  Country: None (occurrence: GB)
  Receive Date: 20231025
  Receipt Date: 20231025
  Transmission Date: 20240110
  Serious: Yes (Life-Threatening, Hospitalization)
  Sender: FDA-Public Use
  Company Number: GB-B.Braun Medical Inc.-2147454

PATIENT
  Age: 13 Year
  Sex: Male
  Weight: 42 kg

DRUGS (2)
  1. BUPIVACAINE HYDROCHLORIDE WITH DEXTROSE [Suspect]
     Active Substance: BUPIVACAINE HYDROCHLORIDE
     Indication: Spinal anaesthesia
  2. MORPHINE [Suspect]
     Active Substance: MORPHINE

REACTIONS (3)
  - Posterior reversible encephalopathy syndrome [None]
  - Product administered to patient of inappropriate age [None]
  - Off label use [None]
